FAERS Safety Report 9743229 (Version 1)
Quarter: 2013Q4

REPORT INFORMATION
  Report Type: Spontaneous
  Country: US (occurrence: US)
  Receive Date: 20131210
  Receipt Date: 20131210
  Transmission Date: 20140711
  Serious: No
  Sender: FDA-Public Use
  Company Number: US-GILEAD-2009-0025122

PATIENT
  Sex: Male
  Weight: 105.69 kg

DRUGS (4)
  1. LETAIRIS [Suspect]
     Indication: PULMONARY ARTERIAL HYPERTENSION
     Route: 048
     Dates: start: 20091009
  2. TYLENOL [Concomitant]
  3. MULTIVITAMIN [Concomitant]
  4. OXYCODONE [Concomitant]

REACTIONS (2)
  - Dizziness [Unknown]
  - Hyperhidrosis [Unknown]
